FAERS Safety Report 7804520-9 (Version None)
Quarter: 2011Q4

REPORT INFORMATION
  Report Type: 
  Country: None (occurrence: None)
  Receive Date: 20111010
  Receipt Date: 20111005
  Transmission Date: 20120403
  Serious: Yes (Other)
  Sender: FDA-Public Use
  Company Number: US-AMGEN-USASP2011042811

PATIENT
  Age: 63 Year
  Sex: Female

DRUGS (1)
  1. ENBREL [Suspect]
     Indication: RHEUMATOID ARTHRITIS
     Dosage: 50 MG, QWK
     Dates: start: 20040604

REACTIONS (10)
  - PAIN [None]
  - INJECTION SITE IRRITATION [None]
  - SYNOVIAL CYST [None]
  - RED BLOOD CELL SEDIMENTATION RATE INCREASED [None]
  - BRONCHOSPASM [None]
  - HERPES ZOSTER [None]
  - INJECTION SITE SWELLING [None]
  - INJECTION SITE INJURY [None]
  - INJECTION SITE PAIN [None]
  - INJECTION SITE ERYTHEMA [None]
